FAERS Safety Report 18177462 (Version 1)
Quarter: 2020Q3

REPORT INFORMATION
  Report Type: Report from Study
  Country: GB (occurrence: GB)
  Receive Date: 20200820
  Receipt Date: 20200820
  Transmission Date: 20201103
  Serious: Yes (Other)
  Sender: FDA-Public Use
  Company Number: GB-MYLANLABS-2020M1071641

PATIENT
  Age: 65 Year
  Sex: Male

DRUGS (1)
  1. EZETIMIBE. [Suspect]
     Active Substance: EZETIMIBE
     Indication: ARTERIOSCLEROSIS
     Dosage: UNK
     Route: 065
     Dates: start: 202007

REACTIONS (1)
  - Myocardial infarction [Unknown]
